FAERS Safety Report 8695518 (Version 2)
Quarter: 2012Q4

REPORT INFORMATION
  Report Type: 
  Country: US (occurrence: US)
  Receive Date: 20120731
  Receipt Date: 20121205
  Transmission Date: 20130627
  Serious: Yes (Other)
  Sender: FDA-Public Use
  Company Number: US-ROCHE-1085759

PATIENT
  Age: 68 Year
  Sex: Female

DRUGS (5)
  1. AVASTIN [Suspect]
     Indication: PRODUCT USED FOR UNKNOWN INDICATION
     Route: 042
     Dates: start: 20060403, end: 20111205
  2. ATENOLOL [Concomitant]
     Indication: HYPERTENSION
     Route: 048
  3. DIOVAN HCT [Concomitant]
     Indication: HYPERCHOLESTEROLAEMIA
     Dosage: 160/25 units not reported
     Route: 048
  4. LIPITOR [Concomitant]
     Indication: HYPERCHOLESTEROLAEMIA
     Route: 048
  5. LUCENTIS [Concomitant]
     Route: 065

REACTIONS (2)
  - Iritis [Recovered/Resolved]
  - Drug hypersensitivity [Unknown]
